FAERS Safety Report 17945981 (Version 2)
Quarter: 2020Q2

REPORT INFORMATION
  Report Type: Report from Study
  Country: CN (occurrence: CN)
  Receive Date: 20200625
  Receipt Date: 20200627
  Transmission Date: 20200714
  Serious: Yes (Life-Threatening, Hospitalization)
  Sender: FDA-Public Use
  Company Number: NVSC2020CN120506

PATIENT
  Age: 80 Year
  Sex: Male

DRUGS (38)
  1. ENTRESTO [Suspect]
     Active Substance: SACUBITRIL\VALSARTAN
     Dosage: 30 MG, BID
     Route: 048
     Dates: start: 20200503
  2. SODIUM BICARBONATE. [Concomitant]
     Active Substance: SODIUM BICARBONATE
     Indication: BLOOD URIC ACID INCREASED
     Dosage: 0.5 MG, TID
     Route: 065
     Dates: start: 20200426
  3. BERAPROST SODIUM [Concomitant]
     Active Substance: BERAPROST SODIUM
     Indication: CARDIOVASCULAR DISORDER
     Dosage: 40 UG, TID (IMPROVE MICRO-CIRCULATION)
     Route: 065
     Dates: start: 20200426
  4. DIGOXIN. [Concomitant]
     Active Substance: DIGOXIN
     Indication: CARDIAC VENTRICULAR DISORDER
     Dosage: 0.125 G, QD (CONTROL VENTRICULAR RATE)
     Route: 065
     Dates: start: 20200429
  5. FEBUXOSTAT. [Concomitant]
     Active Substance: FEBUXOSTAT
     Dosage: 40 MG, QD
     Route: 065
     Dates: start: 20200503
  6. FOLIC ACID. [Concomitant]
     Active Substance: FOLIC ACID
     Indication: HYPERHOMOCYSTEINAEMIA
     Dosage: 5 MG, QD
     Route: 065
     Dates: start: 20200619
  7. RIVAROXABAN [Concomitant]
     Active Substance: RIVAROXABAN
     Indication: ATRIAL FIBRILLATION
     Dosage: 10 MG, QD
     Route: 065
     Dates: start: 20200525
  8. CLOPIDOGREL BISULFATE. [Concomitant]
     Active Substance: CLOPIDOGREL BISULFATE
     Indication: ANTIPLATELET THERAPY
     Dosage: 75 MG, QD (ANTI-PLATELET)
     Route: 065
     Dates: start: 20200426
  9. REBAMIPIDE [Concomitant]
     Active Substance: REBAMIPIDE
     Indication: ABDOMINAL DISCOMFORT
     Dosage: 0.1 G, TID
     Route: 065
     Dates: start: 20200426
  10. FUROSEMIDE. [Concomitant]
     Active Substance: FUROSEMIDE
     Dosage: 20 MG, TID
     Route: 065
     Dates: start: 20200502
  11. METOPROLOL SUCCINATE. [Concomitant]
     Active Substance: METOPROLOL SUCCINATE
     Indication: CARDIAC VENTRICULAR DISORDER
     Dosage: 47.5 MG, QD (CONTROL VENTRICULAR RATE)
     Route: 065
     Dates: start: 20200426
  12. ENTRESTO [Suspect]
     Active Substance: SACUBITRIL\VALSARTAN
     Indication: CEREBRAL INFARCTION
     Dosage: 50 MG, BID
     Route: 048
     Dates: start: 20200427, end: 20200503
  13. RABEPRAZOLE [Concomitant]
     Active Substance: RABEPRAZOLE
     Indication: PREMEDICATION
     Dosage: 20 MG, QD
     Route: 065
     Dates: start: 20200426
  14. RABEPRAZOLE [Concomitant]
     Active Substance: RABEPRAZOLE
     Indication: GASTRIC DISORDER
     Dosage: 20 MG, QD
     Route: 065
     Dates: start: 20200503
  15. TRIMETAZIDINE DIHYDROCHLORIDE [Concomitant]
     Active Substance: TRIMETAZIDINE DIHYDROCHLORIDE
     Indication: CARDIOVASCULAR EVENT PROPHYLAXIS
     Dosage: 35 MG, BID (FOR CARDIAC MUSCULAR NUTRITION)
     Route: 065
     Dates: start: 20200426
  16. CLOPIDOGREL BISULFATE. [Concomitant]
     Active Substance: CLOPIDOGREL BISULFATE
     Dosage: 75 MG, QD
     Route: 065
     Dates: start: 20200503
  17. FUROSEMIDE. [Concomitant]
     Active Substance: FUROSEMIDE
     Dosage: 20 MG, TID
     Route: 065
     Dates: start: 20200525
  18. FUROSEMIDE. [Concomitant]
     Active Substance: FUROSEMIDE
     Dosage: 20 MG, TID
     Route: 065
     Dates: start: 20200430
  19. FUROSEMIDE. [Concomitant]
     Active Substance: FUROSEMIDE
     Dosage: 20 MG, QD
     Route: 065
     Dates: start: 20200608
  20. TEPRENONE [Concomitant]
     Active Substance: TEPRENONE
     Dosage: 50 UNK
     Route: 065
     Dates: start: 20200508
  21. ISOSORBIDE MONONITRATE. [Concomitant]
     Active Substance: ISOSORBIDE MONONITRATE
     Indication: PROPHYLAXIS
     Dosage: 40 MG, QN
     Route: 065
     Dates: start: 20200619
  22. EZETIMIBE. [Concomitant]
     Active Substance: EZETIMIBE
     Dosage: 10 MG, QD
     Route: 065
     Dates: start: 20200503
  23. FUROSEMIDE. [Concomitant]
     Active Substance: FUROSEMIDE
     Indication: POLYURIA
     Dosage: 20 MG, BID
     Route: 065
     Dates: start: 20200426
  24. SPIRONOLACTONE. [Concomitant]
     Active Substance: SPIRONOLACTONE
     Indication: POLYURIA
     Dosage: 20 MG, QD
     Route: 065
     Dates: start: 20200426
  25. SPIRONOLACTONE. [Concomitant]
     Active Substance: SPIRONOLACTONE
     Dosage: 20 MG, TID
     Route: 065
     Dates: start: 20200525
  26. SPIRONOLACTONE. [Concomitant]
     Active Substance: SPIRONOLACTONE
     Dosage: 20 MG, QD
     Route: 065
     Dates: start: 20200608
  27. BERAPROST SODIUM [Concomitant]
     Active Substance: BERAPROST SODIUM
     Dosage: 40 UG, TID
     Route: 065
     Dates: start: 20200608
  28. FEBUXOSTAT. [Concomitant]
     Active Substance: FEBUXOSTAT
     Indication: BLOOD URIC ACID INCREASED
     Dosage: 40 MG, QD
     Route: 065
     Dates: start: 20200426
  29. REBAMIPIDE [Concomitant]
     Active Substance: REBAMIPIDE
     Dosage: 0.1 G, TID
     Route: 065
     Dates: start: 20200503
  30. TRIMETAZIDINE DIHYDROCHLORIDE [Concomitant]
     Active Substance: TRIMETAZIDINE DIHYDROCHLORIDE
     Dosage: 35 UNK
     Route: 065
     Dates: start: 20200503
  31. POLYENE PHOSPHATIDYLCHOLINE [Concomitant]
     Active Substance: PHOSPHOLIPID
     Indication: LIVER DISORDER
     Dosage: 2 DF, TID
     Route: 065
     Dates: start: 20200427
  32. POLYENE PHOSPHATIDYLCHOLINE [Concomitant]
     Active Substance: PHOSPHOLIPID
     Dosage: UNK UNK, UNKNOWN
     Route: 065
     Dates: start: 20200525
  33. FUROSEMIDE. [Concomitant]
     Active Substance: FUROSEMIDE
     Dosage: 20 MG, TID
     Route: 065
     Dates: start: 20200608
  34. SPIRONOLACTONE. [Concomitant]
     Active Substance: SPIRONOLACTONE
     Dosage: 20 MG, TID
     Route: 065
     Dates: start: 20200608
  35. EZETIMIBE. [Concomitant]
     Active Substance: EZETIMIBE
     Indication: HYPERLIPIDAEMIA
     Dosage: 10 MG, QD
     Route: 065
     Dates: start: 20200428
  36. SODIUM BICARBONATE. [Concomitant]
     Active Substance: SODIUM BICARBONATE
     Dosage: 0.5 G, TID
     Route: 065
     Dates: start: 20200503
  37. TEPRENONE [Concomitant]
     Active Substance: TEPRENONE
     Indication: ABDOMINAL DISCOMFORT
     Dosage: 50 MG, TID
     Route: 065
     Dates: start: 20200503
  38. ATORVASTATIN CALCIUM. [Concomitant]
     Active Substance: ATORVASTATIN CALCIUM
     Indication: ARTERIAL STENT INSERTION
     Dosage: 20 MG, QD
     Route: 065
     Dates: start: 20200619

REACTIONS (20)
  - Extensor plantar response [Recovering/Resolving]
  - Stenosis [Recovered/Resolved]
  - Chest discomfort [Recovering/Resolving]
  - Cardiac failure chronic [Recovering/Resolving]
  - Muscle strength abnormal [Recovering/Resolving]
  - Face oedema [Recovering/Resolving]
  - Tachypnoea [Recovering/Resolving]
  - Oedema peripheral [Recovering/Resolving]
  - Purpura [Recovering/Resolving]
  - Atrial fibrillation [Recovering/Resolving]
  - Apathy [Recovering/Resolving]
  - Coma [Recovered/Resolved]
  - Decreased activity [Recovering/Resolving]
  - Bundle branch block right [Recovering/Resolving]
  - Tongue disorder [Recovering/Resolving]
  - Skin wrinkling [Recovering/Resolving]
  - Miosis [Recovered/Resolved]
  - Cardiomegaly [Recovering/Resolving]
  - Poor quality sleep [Recovering/Resolving]
  - Weight fluctuation [Recovering/Resolving]

NARRATIVE: CASE EVENT DATE: 20200503
